FAERS Safety Report 7631509-5 (Version None)
Quarter: 2011Q3

REPORT INFORMATION
  Report Type: 
  Country: None (occurrence: None)
  Receive Date: 20110725
  Receipt Date: 20110720
  Transmission Date: 20111222
  Serious: Yes (Other)
  Sender: FDA-Public Use
  Company Number: US-BRISTOL-MYERS SQUIBB COMPANY-15914112

PATIENT
  Age: 62 Year
  Sex: Female
  Weight: 114 kg

DRUGS (12)
  1. MS CONTIN [Concomitant]
  2. MORPHINE SULFATE [Concomitant]
  3. LASIX [Concomitant]
  4. POTASSIUM [Concomitant]
  5. PRILOSEC [Concomitant]
  6. ORENCIA [Suspect]
     Dates: start: 20101001
  7. RELAFEN [Concomitant]
  8. ALBUTEROL INHALER [Concomitant]
  9. ACCUPRIL [Concomitant]
  10. HYDROCHLOROTHIAZIDE [Concomitant]
  11. CYCLOBENZAPRINE [Concomitant]
  12. SALAGEN [Concomitant]

REACTIONS (2)
  - KNEE OPERATION [None]
  - DYSPNOEA [None]
